FAERS Safety Report 13342440 (Version 3)
Quarter: 2017Q3

REPORT INFORMATION
  Report Type: Report from Study
  Country: JP (occurrence: JP)
  Receive Date: 20170316
  Receipt Date: 20170828
  Transmission Date: 20171127
  Serious: Yes (Other)
  Sender: FDA-Public Use
  Company Number: JP-ACTELION-A-CH2017-150865

PATIENT
  Age: 30 Year
  Sex: Male
  Weight: 62 kg

DRUGS (5)
  1. UPTRAVI [Suspect]
     Active Substance: SELEXIPAG
     Dosage: 200 ?G, BID
     Route: 048
     Dates: start: 20170122, end: 20170212
  2. OPSUMIT [Concomitant]
     Active Substance: MACITENTAN
     Indication: PULMONARY ARTERIAL HYPERTENSION
     Dosage: UNK
     Dates: start: 20170116
  3. ADCIRCA [Concomitant]
     Active Substance: TADALAFIL
     Dosage: UNK
     Dates: start: 20170112
  4. UPTRAVI [Suspect]
     Active Substance: SELEXIPAG
     Dosage: 600 ?G, QD
     Route: 048
     Dates: start: 20170213, end: 20170303
  5. UPTRAVI [Suspect]
     Active Substance: SELEXIPAG
     Indication: PULMONARY ARTERIAL HYPERTENSION
     Dosage: 100 ?G, BID
     Route: 048
     Dates: start: 20170119, end: 20170121

REACTIONS (6)
  - Platelet count decreased [Recovering/Resolving]
  - Diarrhoea [Recovered/Resolved]
  - Pulmonary haemorrhage [Recovered/Resolved]
  - Pain in jaw [Recovered/Resolved]
  - Headache [Recovered/Resolved]
  - Epistaxis [Recovered/Resolved]

NARRATIVE: CASE EVENT DATE: 20170119
